FAERS Safety Report 8338658-7 (Version None)
Quarter: 2012Q2

REPORT INFORMATION
  Report Type: 
  Country: None (occurrence: None)
  Receive Date: 20120504
  Receipt Date: 20120501
  Transmission Date: 20120825
  Serious: Yes (Hospitalization)
  Sender: FDA-Public Use
  Company Number: US-AMGEN-USASP2010002364

PATIENT
  Age: 65 Year
  Sex: Female

DRUGS (2)
  1. ENBREL [Suspect]
     Dosage: 50 MG, QWK
     Dates: start: 20070101
  2. ENBREL [Suspect]
     Indication: OFF LABEL USE
     Dosage: 50 MG, QWK
     Dates: start: 20000401

REACTIONS (4)
  - OSTEOARTHRITIS [None]
  - MOBILITY DECREASED [None]
  - INJECTION SITE PAIN [None]
  - ARTHRALGIA [None]
